FAERS Safety Report 9629765 (Version 2)
Quarter: 2013Q4

REPORT INFORMATION
  Report Type: Spontaneous
  Country: FR (occurrence: FR)
  Receive Date: 20131017
  Receipt Date: 20131211
  Transmission Date: 20140711
  Serious: Yes (Other)
  Sender: FDA-Public Use
  Company Number: FR-GLAXOSMITHKLINE-B0929602A

PATIENT
  Age: 77 Year
  Sex: Female

DRUGS (8)
  1. ZOPHREN [Suspect]
     Indication: PRODUCT USED FOR UNKNOWN INDICATION
     Route: 048
     Dates: start: 20130905
  2. LOVENOX [Suspect]
     Indication: PRODUCT USED FOR UNKNOWN INDICATION
     Route: 058
     Dates: start: 20130905, end: 20130924
  3. BIPROFENID [Suspect]
     Indication: PRODUCT USED FOR UNKNOWN INDICATION
     Dosage: 100MG TWICE PER DAY
     Route: 048
     Dates: start: 20130920
  4. TRAMADOL [Suspect]
     Indication: PRODUCT USED FOR UNKNOWN INDICATION
     Dates: start: 20130905
  5. PARACETAMOL [Suspect]
     Dosage: 1G THREE TIMES PER DAY
     Route: 048
     Dates: start: 20130905
  6. PREDNISONE [Concomitant]
     Dosage: 5MG IN THE MORNING
  7. CALCIDOSE [Concomitant]
     Dosage: 1UNIT IN THE MORNING
  8. INEXIUM [Concomitant]
     Dosage: 20MG AT NIGHT

REACTIONS (1)
  - Thrombocytopenia [Recovered/Resolved]
